FAERS Safety Report 12071598 (Version 9)
Quarter: 2018Q1

REPORT INFORMATION
  Report Type: Spontaneous
  Country: CA (occurrence: CA)
  Receive Date: 20160212
  Receipt Date: 20180122
  Transmission Date: 20180508
  Serious: Yes (Hospitalization)
  Sender: FDA-Public Use
  Company Number: CA-AMGEN-CANSP2016016736

PATIENT
  Age: 59 Year
  Sex: Female

DRUGS (51)
  1. OBINUTUZUMAB. [Suspect]
     Active Substance: OBINUTUZUMAB
     Dosage: 975 MG, C1D2. TEMPORARILY INTERRUPTED ON 26/JAN/2016, INFUSION RATE:400
     Route: 042
     Dates: start: 20160120, end: 20160120
  2. OBINUTUZUMAB. [Suspect]
     Active Substance: OBINUTUZUMAB
     Dosage: C1D15, INFUSION RATE:400, 1000 MG
     Route: 042
     Dates: start: 20160217, end: 20160217
  3. FLUDARABINE [Suspect]
     Active Substance: FLUDARABINE PHOSPHATE
     Dosage: C4D1, C4D2, AND C4D3, 25 MG/M2
     Route: 042
     Dates: start: 20160504, end: 20160506
  4. DEMEROL [Concomitant]
     Active Substance: MEPERIDINE HYDROCHLORIDE
     Dosage: 50 MG, ONE TIME DOSE
     Route: 042
     Dates: start: 20160119, end: 20160119
  5. AVAMYS [Concomitant]
     Active Substance: FLUTICASONE FUROATE
     Dosage: UNK (2 SPRAYS)
     Route: 045
     Dates: start: 20160118, end: 20160201
  6. NEUPOGEN [Suspect]
     Active Substance: FILGRASTIM
     Indication: PRODUCT USED FOR UNKNOWN INDICATION
     Dosage: 300 MCG, 1 IN 1 D
     Route: 058
     Dates: start: 20160126, end: 20160204
  7. NEULASTA [Concomitant]
     Active Substance: PEGFILGRASTIM
     Dosage: 6 MG, UNK (SINGLE DOSE)
     Dates: start: 20160508, end: 20160508
  8. ALLOPURINOL. [Concomitant]
     Active Substance: ALLOPURINOL
     Dosage: 300 MG, QD
     Route: 048
     Dates: start: 20160118, end: 20160217
  9. SEPTRA DS [Concomitant]
     Active Substance: SULFAMETHOXAZOLE\TRIMETHOPRIM
     Dosage: UNK (160/800MG, EVERY MONDAY, WEDNESDAY AND FRIDAY)
     Route: 048
     Dates: start: 20160118
  10. DEXAMETHASONE. [Concomitant]
     Active Substance: DEXAMETHASONE
     Dosage: 20 MG, ONE TIME DOSE
     Route: 042
     Dates: start: 20160118, end: 20160118
  11. DEXAMETHASONE. [Concomitant]
     Active Substance: DEXAMETHASONE
     Dosage: 20 MG, UNK (PRE-CHEMOTHERAPY DAY 1 AND DAY2)
     Route: 042
     Dates: start: 20160119
  12. TAZOCIN [Concomitant]
     Active Substance: PIPERACILLIN SODIUM\TAZOBACTAM SODIUM
     Indication: FEBRILE NEUTROPENIA
     Dosage: 4.5 MG, TID
     Route: 042
     Dates: start: 20161223, end: 20161224
  13. CIPRO [Concomitant]
     Active Substance: CIPROFLOXACIN HYDROCHLORIDE
     Indication: PROPHYLAXIS
     Dosage: 750 MG, TWICE DAILY
     Route: 048
     Dates: start: 20160128, end: 20160201
  14. NEUPOGEN [Suspect]
     Active Substance: FILGRASTIM
     Dosage: 300 MG, UNK
     Route: 065
     Dates: start: 20170425, end: 20170430
  15. OBINUTUZUMAB. [Suspect]
     Active Substance: OBINUTUZUMAB
     Dosage: C1D8. INFUSION RATE:400, 1000 MG
     Route: 042
     Dates: start: 20160209, end: 20160209
  16. CYCLOPHOSPHAMIDE. [Suspect]
     Active Substance: CYCLOPHOSPHAMIDE
     Dosage: 250 MG/M2, QD (C61D1, C6D2 AND C6D3)
     Route: 042
     Dates: start: 20160705, end: 20160707
  17. ACICLOVIR [Concomitant]
     Active Substance: ACYCLOVIR
     Dosage: 400 MG, BID (2 IN 1 D)
     Route: 048
     Dates: start: 20160118
  18. CODEINE [Concomitant]
     Active Substance: CODEINE
     Indication: INFLUENZA
     Dosage: 30 MG, AS NECESSARY
     Route: 048
     Dates: start: 20161224, end: 20161224
  19. OBINUTUZUMAB. [Suspect]
     Active Substance: OBINUTUZUMAB
     Dosage: C5D1, INFUSION RATE:400, 1000 MG
     Route: 042
     Dates: start: 20160608, end: 20160608
  20. FLUDARABINE [Suspect]
     Active Substance: FLUDARABINE PHOSPHATE
     Dosage: C1D3 25 MG/M2
     Route: 042
     Dates: start: 20160121, end: 20160121
  21. FLUDARABINE [Suspect]
     Active Substance: FLUDARABINE PHOSPHATE
     Dosage: C2D1, C2D2, AND C2D3, 25 MG/M2
     Route: 042
     Dates: start: 20160302, end: 20160304
  22. DEXAMETHASONE. [Concomitant]
     Active Substance: DEXAMETHASONE
     Dosage: 8 MG, UNK (DAY 3-5)
     Route: 048
     Dates: start: 20160121
  23. TAZOCIN [Concomitant]
     Active Substance: PIPERACILLIN SODIUM\TAZOBACTAM SODIUM
     Dosage: 4.5 MG, TID
     Route: 042
     Dates: start: 20161223, end: 20161223
  24. CEFTAZIDIME. [Concomitant]
     Active Substance: CEFTAZIDIME
     Indication: FEBRILE NEUTROPENIA
     Dosage: 20 ML, UNK
     Dates: start: 20170426, end: 20170426
  25. CIPRO [Concomitant]
     Active Substance: CIPROFLOXACIN HYDROCHLORIDE
     Dosage: 500 MG, QD
     Route: 048
     Dates: start: 20170301, end: 20170308
  26. OBINUTUZUMAB. [Suspect]
     Active Substance: OBINUTUZUMAB
     Dosage: C3D1, INFUSION RATE:400, 1000 MG
     Route: 042
     Dates: start: 20160330, end: 20160330
  27. FLUDARABINE [Suspect]
     Active Substance: FLUDARABINE PHOSPHATE
     Dosage: C1D2 25 MG/M2
     Route: 042
     Dates: start: 20160120, end: 20160120
  28. OBINUTUZUMAB. [Suspect]
     Active Substance: OBINUTUZUMAB
     Indication: CHRONIC LYMPHOCYTIC LEUKAEMIA
     Dosage: C1D1 TEMPORARILY INTERRUPTED ON 26/JAN/2016 FOR INFUSION RELATED REACTION, INFUSION RATE:12.5, 25 MG
     Route: 042
     Dates: start: 20160119, end: 20160119
  29. OBINUTUZUMAB. [Suspect]
     Active Substance: OBINUTUZUMAB
     Dosage: C2D1, INFUSION RATE:400, 1000 MG
     Route: 042
     Dates: start: 20160302, end: 20160302
  30. OBINUTUZUMAB. [Suspect]
     Active Substance: OBINUTUZUMAB
     Dosage: C4D1, INFUSION RATE:400, 1000 MG
     Route: 042
     Dates: start: 20160504, end: 20160504
  31. OBINUTUZUMAB. [Suspect]
     Active Substance: OBINUTUZUMAB
     Dosage: C6D1, INFUSION RATE:400, 25 MG
     Route: 042
     Dates: start: 20160705, end: 20160705
  32. FLUDARABINE [Suspect]
     Active Substance: FLUDARABINE PHOSPHATE
     Indication: CHRONIC LYMPHOCYTIC LEUKAEMIA
     Dosage: C1D1 25 MG/M2
     Route: 042
     Dates: start: 20160119, end: 20160119
  33. FLUDARABINE [Suspect]
     Active Substance: FLUDARABINE PHOSPHATE
     Dosage: C3D1, C3D2, AND C3D3, 25 MG/M2
     Route: 042
     Dates: start: 20160330, end: 20160401
  34. FLUDARABINE [Suspect]
     Active Substance: FLUDARABINE PHOSPHATE
     Dosage: C6D1, C6D2, AND C6D3, 25 MG/M2
     Route: 042
     Dates: start: 20160705, end: 20160707
  35. CYCLOPHOSPHAMIDE. [Suspect]
     Active Substance: CYCLOPHOSPHAMIDE
     Indication: CHRONIC LYMPHOCYTIC LEUKAEMIA
     Dosage: 250 MG/M2, QD (C1D1, C1D2 AND C1D3)
     Route: 042
     Dates: start: 20160119, end: 20160121
  36. CYCLOPHOSPHAMIDE. [Suspect]
     Active Substance: CYCLOPHOSPHAMIDE
     Dosage: C2D1, C2D2 AND C2D3, 250 MG/M2
     Route: 042
     Dates: start: 20160302, end: 20160304
  37. CYCLOPHOSPHAMIDE. [Suspect]
     Active Substance: CYCLOPHOSPHAMIDE
     Dosage: C31D1, C3D2 AND C3D3, 250 MG/M2
     Route: 042
     Dates: start: 20160330, end: 20160401
  38. NEULASTA [Concomitant]
     Active Substance: PEGFILGRASTIM
     Dosage: 6 MG, UNK (SINGLE DOSE)
     Dates: start: 20160306, end: 20160306
  39. TAZOCIN [Concomitant]
     Active Substance: PIPERACILLIN SODIUM\TAZOBACTAM SODIUM
     Indication: INFLUENZA
     Dosage: 4.5 MG, TID
     Route: 042
     Dates: start: 20160127, end: 20160127
  40. ACETAMINOPHEN. [Concomitant]
     Active Substance: ACETAMINOPHEN
     Indication: INFLUENZA
     Dosage: 650 MG, AS NECESSARY
     Route: 048
     Dates: start: 20161223, end: 20161224
  41. CEFTAZIDIME. [Concomitant]
     Active Substance: CEFTAZIDIME
     Dosage: UNK
     Route: 042
     Dates: start: 20170428, end: 20170429
  42. FLUDARABINE [Suspect]
     Active Substance: FLUDARABINE PHOSPHATE
     Dosage: C5D1, C5D2, AND C5D3, 25 MG/M2
     Route: 042
     Dates: start: 20160608, end: 20160610
  43. CYCLOPHOSPHAMIDE. [Suspect]
     Active Substance: CYCLOPHOSPHAMIDE
     Dosage: C41D1, C4D2 AND C4D3, 250 MG/M2
     Route: 042
     Dates: start: 20160504, end: 20160506
  44. CYCLOPHOSPHAMIDE. [Suspect]
     Active Substance: CYCLOPHOSPHAMIDE
     Dosage: C51D1, C5D2 AND C5D3, 250 MG/M2
     Route: 042
     Dates: start: 20160608, end: 20160610
  45. NEULASTA [Concomitant]
     Active Substance: PEGFILGRASTIM
     Dosage: 6 MG, UNK (SINGLE DOSE)
     Dates: start: 20160404, end: 20160404
  46. NEULASTA [Concomitant]
     Active Substance: PEGFILGRASTIM
     Dosage: 6 MG, UNK (SINGLE DOSE)
     Dates: start: 20160612, end: 20160612
  47. MONTELUKAST [Concomitant]
     Active Substance: MONTELUKAST SODIUM
     Dosage: 10 MG, UNK (12 HOUR AND 1 HOUR BEFORE C1D1)
     Route: 048
     Dates: start: 20160118, end: 20160119
  48. ACETAMINOPHEN. [Concomitant]
     Active Substance: ACETAMINOPHEN
     Indication: FEBRILE NEUTROPENIA
     Dosage: 650 MG, UNK (PRE-OBINUTUZUMAB)
     Route: 048
     Dates: start: 20160119, end: 20160119
  49. FUROSEMIDE SODIUM [Concomitant]
     Active Substance: FUROSEMIDE SODIUM
     Dosage: 20 MG, ONE TIME DOSE
     Route: 042
     Dates: start: 20160121, end: 20160121
  50. CALCIUM CARBONATE. [Concomitant]
     Active Substance: CALCIUM CARBONATE
     Dosage: 1250 MG, TID
     Route: 048
     Dates: start: 20160127, end: 20160130
  51. AMOXICILLIN AND CLAVULANATE POTASSIUM [Concomitant]
     Active Substance: AMOXICILLIN\CLAVULANATE POTASSIUM
     Indication: FEBRILE NEUTROPENIA
     Dosage: 865 MG, TWICE DAILY
     Route: 048
     Dates: start: 20160128, end: 20160203

REACTIONS (3)
  - Febrile neutropenia [Recovered/Resolved with Sequelae]
  - Influenza [Recovered/Resolved]
  - Febrile neutropenia [Recovered/Resolved]

NARRATIVE: CASE EVENT DATE: 20160126
